FAERS Safety Report 6286945-9 (Version None)
Quarter: 2009Q3

REPORT INFORMATION
  Report Type: 
  Country: None (occurrence: None)
  Receive Date: 20090724
  Receipt Date: 20090709
  Transmission Date: 20100115
  Serious: Yes (Disabling)
  Sender: FDA-Public Use
  Company Number: ADE2009-0729

PATIENT
  Age: 87 Year
  Sex: Female
  Weight: 60 kg

DRUGS (5)
  1. SIMVASTATIN TABLET [Suspect]
     Indication: MYOCARDIAL ISCHAEMIA
     Dosage: 10MG, ORAL
     Route: 048
  2. ACETAMINOPHEN [Concomitant]
  3. CARBOCYSTEINE [Concomitant]
  4. CLOPIDOGREL BISULFATE [Concomitant]
  5. OMEPRAZOLE [Concomitant]

REACTIONS (2)
  - NIGHTMARE [None]
  - POOR QUALITY SLEEP [None]
